FAERS Safety Report 24297401 (Version 1)
Quarter: 2024Q3

REPORT INFORMATION
  Report Type: Spontaneous
  Country: GB (occurrence: GB)
  Receive Date: 20240909
  Receipt Date: 20240909
  Transmission Date: 20241017
  Serious: No
  Sender: ALKEM
  Company Number: None

PATIENT
  Sex: Female

DRUGS (4)
  1. PREGABALIN [Suspect]
     Active Substance: PREGABALIN
     Indication: Chemotherapy
     Dosage: 75 MILLIGRAM, BID (BD)
     Route: 065
  2. PREGABALIN [Suspect]
     Active Substance: PREGABALIN
     Indication: Neuropathy peripheral
     Dosage: 150 MILLIGRAM, BID (CAPSULE) (TWICE DAILY)
     Route: 065
     Dates: start: 20230615
  3. PREGABALIN [Suspect]
     Active Substance: PREGABALIN
     Dosage: 150 MILLIGRAM, BID (BD) (INCREASED) (3 WEEKS AGO)
     Route: 065
     Dates: start: 20230713
  4. EXEMESTANE [Concomitant]
     Active Substance: EXEMESTANE
     Indication: Adjuvant therapy
     Dosage: UNK
     Route: 065
     Dates: start: 20230115

REACTIONS (1)
  - Oedema peripheral [Not Recovered/Not Resolved]

NARRATIVE: CASE EVENT DATE: 20230713
